FAERS Safety Report 18723074 (Version 2)
Quarter: 2021Q1

REPORT INFORMATION
  Report Type: Spontaneous
  Country: GB (occurrence: GB)
  Receive Date: 20210111
  Receipt Date: 20210310
  Transmission Date: 20210419
  Serious: Yes (Other)
  Sender: FDA-Public Use
  Company Number: GB-SA-2021SA005262

PATIENT
  Age: 55 Year
  Sex: Female

DRUGS (60)
  1. AZTREONAM. [Concomitant]
     Active Substance: AZTREONAM
     Indication: BILIARY SEPSIS
     Dosage: UNK
     Route: 042
     Dates: start: 20200925, end: 20200925
  2. BLOOD [Concomitant]
     Active Substance: WHOLE BLOOD
     Indication: DUODENAL ULCER
     Dosage: 2 UNIT
     Route: 042
     Dates: start: 20201112, end: 20201112
  3. CALCICHEW D3 FORTE [Concomitant]
     Active Substance: CALCIUM\CHOLECALCIFEROL
     Dosage: UNK, 0.33 DAY
     Route: 048
     Dates: start: 20170525
  4. LOPERAMIDE [Concomitant]
     Active Substance: LOPERAMIDE
     Dosage: 1 UNK, PRN
     Route: 048
     Dates: start: 20170613
  5. TINZAPARIN [Concomitant]
     Active Substance: TINZAPARIN
     Dosage: UNK
     Route: 058
     Dates: start: 20170713, end: 20170723
  6. TRASTUZUMAB. [Suspect]
     Active Substance: TRASTUZUMAB
     Dosage: 400 MG, Q3W
     Route: 042
     Dates: start: 20170614, end: 20180425
  7. TRASTUZUMAB. [Suspect]
     Active Substance: TRASTUZUMAB
     Dosage: 378 MG, Q3W
     Route: 041
     Dates: start: 20180516, end: 20190327
  8. DOCETAXEL. [Suspect]
     Active Substance: DOCETAXEL
     Indication: BREAST CANCER
     Dosage: 130 MG, Q3W
     Route: 042
     Dates: start: 20170525, end: 20170525
  9. PERTUZUMAB. [Suspect]
     Active Substance: PERTUZUMAB
     Indication: BREAST CANCER
     Dosage: 840 MG, Q3W
     Route: 042
     Dates: start: 20170524, end: 20170524
  10. AMIKACIN. [Concomitant]
     Active Substance: AMIKACIN
     Indication: BILIARY SEPSIS
     Dosage: UNK
     Route: 042
     Dates: start: 20200504, end: 20200504
  11. DOMPERIDONE [Concomitant]
     Active Substance: DOMPERIDONE
     Dosage: 10 MG, 0.33 DAY
     Route: 048
     Dates: start: 20170523
  12. METRONIDAZOLE. [Concomitant]
     Active Substance: METRONIDAZOLE
     Indication: ABDOMINAL PAIN UPPER
     Dosage: UNK
     Dates: start: 20200630, end: 20200709
  13. POTASSIUM BICARBONATE;POTASSIUM CHLORIDE [Concomitant]
     Dosage: UNK, 0.5 DAY
     Route: 048
     Dates: start: 20170525
  14. TEICOPLANIN [Concomitant]
     Active Substance: TEICOPLANIN
     Indication: PYREXIA
     Dosage: UNK
     Route: 042
     Dates: start: 20200502, end: 20200515
  15. CEFTRIAXONE. [Concomitant]
     Active Substance: CEFTRIAXONE
     Indication: BILIARY SEPSIS
     Dosage: 250 MG, BID
     Route: 048
     Dates: start: 20200928, end: 20201012
  16. CEFTRIAXONE. [Concomitant]
     Active Substance: CEFTRIAXONE
     Dosage: 2 G, QD
     Route: 042
     Dates: start: 20200925, end: 20200927
  17. CETIRIZINE [Concomitant]
     Active Substance: CETIRIZINE HYDROCHLORIDE
     Indication: PUSTULE
     Dosage: UNK UNK, QD
     Route: 048
     Dates: start: 20190313
  18. CIPROFLOXACIN. [Concomitant]
     Active Substance: CIPROFLOXACIN
     Dosage: 500 MG, BID
     Route: 048
     Dates: start: 20200815, end: 20200819
  19. NERATINIB [Concomitant]
     Active Substance: NERATINIB
     Dosage: 240 MG, QD
     Dates: start: 20200919, end: 20201104
  20. TEICOPLANIN [Concomitant]
     Active Substance: TEICOPLANIN
     Indication: BILIARY SEPSIS
     Dosage: UNK
     Route: 042
     Dates: start: 20201028
  21. VANCOMYCIN [Concomitant]
     Active Substance: VANCOMYCIN
     Indication: CLOSTRIDIUM DIFFICILE INFECTION
     Dosage: 125 MG, 0.25 DAY
     Route: 048
     Dates: start: 20201030
  22. PACLITAXEL. [Suspect]
     Active Substance: PACLITAXEL
     Dosage: 375 MG, Q3W
     Route: 042
     Dates: start: 20170705, end: 20170726
  23. TRASTUZUMAB EMTANSINE [Suspect]
     Active Substance: ADO-TRASTUZUMAB EMTANSINE
     Dosage: 200 MG, Q3W
     Route: 042
     Dates: start: 20190627, end: 20190718
  24. AMITRIPTYLINE HYDROCHLORIDE. [Concomitant]
     Active Substance: AMITRIPTYLINE HYDROCHLORIDE
     Dosage: UNK UNK, QD
     Route: 048
     Dates: start: 20190827
  25. AZTREONAM. [Concomitant]
     Active Substance: AZTREONAM
     Dosage: UNK
     Route: 042
     Dates: start: 20201028
  26. CALCICHEW D3 FORTE [Concomitant]
     Active Substance: CALCIUM\CHOLECALCIFEROL
     Dosage: UNK, 0.33 DAY
     Route: 048
     Dates: start: 20170525
  27. CHLORPHENAMINE [Concomitant]
     Active Substance: CHLORPHENIRAMINE MALEATE
     Dosage: UNK,  0.25 DAY
     Route: 048
     Dates: start: 20170526
  28. CLOBETASOL PROPIONATE. [Concomitant]
     Active Substance: CLOBETASOL PROPIONATE
     Dosage: UNK, 0.5 DAY
     Route: 061
     Dates: start: 20170210
  29. FLUCLOXACILLIN [Concomitant]
     Active Substance: FLUCLOXACILLIN
     Indication: FOLLICULITIS
     Dosage: UNK
     Route: 048
     Dates: start: 20190122
  30. FUSIDIC ACID [Concomitant]
     Active Substance: FUSIDIC ACID
     Dosage: UNK
     Dates: start: 201905
  31. IKERVIS [Concomitant]
     Active Substance: CYCLOSPORINE
     Indication: BLEPHARITIS
     Dosage: UNK
     Dates: start: 202008
  32. MEROPENEM. [Concomitant]
     Active Substance: MEROPENEM
     Indication: ABDOMINAL PAIN
     Dosage: UNK
     Route: 042
     Dates: start: 20201130
  33. MEROPENEM. [Concomitant]
     Active Substance: MEROPENEM
     Indication: BILIARY SEPSIS
     Dosage: 2 G, 0.33 DAY
     Route: 042
     Dates: start: 20200502, end: 20200515
  34. METRONIDAZOLE. [Concomitant]
     Active Substance: METRONIDAZOLE
     Indication: CHOLECYSTITIS ACUTE
     Dosage: UNK
     Route: 065
     Dates: start: 20200909, end: 20200914
  35. OMEPRAZOLE. [Concomitant]
     Active Substance: OMEPRAZOLE
     Indication: DUODENAL ULCER
     Dosage: 40 MG, BID
     Route: 048
     Dates: start: 20201113
  36. TEICOPLANIN [Concomitant]
     Active Substance: TEICOPLANIN
     Dosage: UNK
     Route: 042
     Dates: start: 20200925, end: 20200925
  37. TRANEXAMIC ACID. [Concomitant]
     Active Substance: TRANEXAMIC ACID
     Indication: DUODENAL ULCER
     Dosage: 1 G
     Route: 048
     Dates: start: 20201112
  38. XELODA [Concomitant]
     Active Substance: CAPECITABINE
     Dosage: 1300 MG
     Route: 048
     Dates: start: 20201020
  39. ZOLEDRONIC ACID [Concomitant]
     Active Substance: ZOLEDRONIC ACID
     Dosage: 4 MG, Q4W, (ONCE IN EVERY 3 TO4 WEEKS)
     Route: 048
     Dates: start: 20170525
  40. TRASTUZUMAB. [Suspect]
     Active Substance: TRASTUZUMAB
     Indication: BREAST CANCER
     Dosage: 525 MG, Q3W (LOADING DOSE)
     Route: 042
     Dates: start: 20170524, end: 20170524
  41. CEFUROXIME. [Concomitant]
     Active Substance: CEFUROXIME
     Dosage: 250 MG, BID
     Route: 048
     Dates: start: 20201028
  42. CHLORHEXIDINE GLUCONATE. [Concomitant]
     Active Substance: CHLORHEXIDINE GLUCONATE
     Dosage: UNK, 0.25 DAY
     Route: 061
     Dates: start: 20170525
  43. TRASTUZUMAB EMTANSINE [Suspect]
     Active Substance: ADO-TRASTUZUMAB EMTANSINE
     Indication: BREAST CANCER
     Dosage: 240 MG, Q3W
     Route: 042
     Dates: start: 20190427, end: 20190606
  44. ERTAPENEM. [Concomitant]
     Active Substance: ERTAPENEM SODIUM
     Indication: BILIARY SEPSIS
     Dosage: 1 G
     Route: 042
     Dates: start: 20200501, end: 20200502
  45. MEROPENEM. [Concomitant]
     Active Substance: MEROPENEM
     Indication: PYREXIA
     Dosage: UNK
     Route: 065
  46. PACLITAXEL. [Suspect]
     Active Substance: PACLITAXEL
     Dosage: 300 MG, Q3W
     Route: 042
     Dates: start: 20170816, end: 20170906
  47. PERTUZUMAB. [Suspect]
     Active Substance: PERTUZUMAB
     Dosage: 420 MG, Q3W
     Route: 042
     Dates: start: 20170614, end: 20190327
  48. TRASTUZUMAB EMTANSINE [Suspect]
     Active Substance: ADO-TRASTUZUMAB EMTANSINE
     Dosage: 160 MG, Q3W
     Route: 042
     Dates: start: 20190829, end: 20200326
  49. HALAVEN [Concomitant]
     Active Substance: ERIBULIN MESYLATE
     Indication: BREAST CANCER
     Dosage: 1.85 MG
     Route: 048
     Dates: start: 20200611, end: 20200820
  50. LANSOPRAZOLE. [Concomitant]
     Active Substance: LANSOPRAZOLE
     Indication: GASTRITIS
     Dosage: UNK UNK, QD
     Route: 048
     Dates: start: 20190730, end: 20190730
  51. PARACETAMOL [Concomitant]
     Active Substance: ACETAMINOPHEN
     Dosage: UNK UNK, PRN
     Dates: start: 20170525
  52. TINZAPARIN [Concomitant]
     Active Substance: TINZAPARIN
     Indication: THROMBOSIS
     Dosage: UNK UNK, QD
     Route: 058
     Dates: start: 20190916
  53. PACLITAXEL. [Suspect]
     Active Substance: PACLITAXEL
     Indication: BREAST CANCER
     Dosage: 450 MG, Q3W
     Route: 042
     Dates: start: 20170614, end: 20170614
  54. CEFUROXIME. [Concomitant]
     Active Substance: CEFUROXIME
     Indication: BILIARY SEPSIS
     Dosage: 250 MG, BID
     Route: 048
     Dates: start: 20200925, end: 20201009
  55. CIPROFLOXACIN. [Concomitant]
     Active Substance: CIPROFLOXACIN
     Indication: PYREXIA
     Dosage: 250 MG, BID
     Route: 048
     Dates: start: 20200726, end: 20200801
  56. CIPROFLOXACIN. [Concomitant]
     Active Substance: CIPROFLOXACIN
     Indication: CHOLECYSTITIS ACUTE
     Dosage: 500 MG, BID
     Route: 048
     Dates: start: 20200909, end: 20200916
  57. CIPROFLOXACIN. [Concomitant]
     Active Substance: CIPROFLOXACIN
     Dosage: 500 MG, BID
     Route: 048
     Dates: start: 20200823, end: 20200828
  58. CIPROFLOXACIN. [Concomitant]
     Active Substance: CIPROFLOXACIN
     Dosage: UNK, 0.5 DAY
     Route: 048
     Dates: start: 20200707, end: 202007
  59. TEICOPLANIN [Concomitant]
     Active Substance: TEICOPLANIN
     Dosage: UNK
     Route: 042
     Dates: start: 20200724, end: 20200728
  60. XELODA [Concomitant]
     Active Substance: CAPECITABINE
     Dosage: 1300 MG
     Route: 048
     Dates: start: 20201020

REACTIONS (3)
  - Neuropathy peripheral [Recovering/Resolving]
  - Off label use [Unknown]
  - Coagulopathy [Recovering/Resolving]

NARRATIVE: CASE EVENT DATE: 20190716
